FAERS Safety Report 21848806 (Version 3)
Quarter: 2024Q3

REPORT INFORMATION
  Report Type: Spontaneous
  Country: US (occurrence: US)
  Receive Date: 20230111
  Receipt Date: 20240723
  Transmission Date: 20241017
  Serious: No
  Sender: SANOFI AVENTIS
  Company Number: US-SA-SAC20230110000167

PATIENT
  Age: 56 Year
  Sex: Male
  Weight: 138 kg

DRUGS (6)
  1. DUPIXENT [Suspect]
     Active Substance: DUPILUMAB
     Indication: Dermatitis atopic
     Dosage: 300 MG, QOW
     Route: 058
     Dates: start: 201706
  2. TRIAMCINOLONE ACETONIDE [Concomitant]
     Active Substance: TRIAMCINOLONE ACETONIDE
  3. TYLENOL [Concomitant]
     Active Substance: ACETAMINOPHEN
  4. TYLENOL [Concomitant]
     Active Substance: ACETAMINOPHEN
  5. CERAVE HEALING [Concomitant]
     Active Substance: PETROLATUM
  6. CLONAZEPAM [Concomitant]
     Active Substance: CLONAZEPAM

REACTIONS (6)
  - Colonoscopy [Unknown]
  - Pain in extremity [Unknown]
  - Eczema [Unknown]
  - Dermatitis atopic [Unknown]
  - Exposure via skin contact [Unknown]
  - Accidental exposure to product [Unknown]

NARRATIVE: CASE EVENT DATE: 20221201
